FAERS Safety Report 10172879 (Version 1)
Quarter: 2014Q2

REPORT INFORMATION
  Report Type: Spontaneous
  Country: US (occurrence: US)
  Receive Date: 20140515
  Receipt Date: 20140515
  Transmission Date: 20141212
  Serious: No
  Sender: FDA-Public Use
  Company Number: US-JNJFOC-20140503476

PATIENT
  Age: 78 Year
  Sex: Female
  Weight: 54.89 kg

DRUGS (8)
  1. SANDOZ FENTANYL TRANSDERMAL SYSTEM [Suspect]
     Indication: PAIN
     Route: 062
     Dates: start: 20140430
  2. HYDROMORPHONE HYDROCHLORIDE [Concomitant]
     Indication: PAIN
     Route: 048
     Dates: start: 20140501
  3. LORAZEPAM [Concomitant]
     Indication: SEDATIVE THERAPY
     Route: 048
     Dates: start: 20140501
  4. GENERLAC [Concomitant]
     Indication: CONSTIPATION
     Route: 065
     Dates: start: 20140501
  5. VITAMIN D [Concomitant]
     Indication: BONE DISORDER
     Route: 048
     Dates: start: 20140505
  6. ZOLPIDEM [Concomitant]
     Indication: SLEEP DISORDER
     Route: 048
     Dates: start: 2014
  7. VITAMIN C [Concomitant]
     Indication: PRODUCT USED FOR UNKNOWN INDICATION
     Route: 065
  8. VITAMINE E [Concomitant]
     Indication: PRODUCT USED FOR UNKNOWN INDICATION
     Route: 065

REACTIONS (7)
  - Pain [Not Recovered/Not Resolved]
  - Sleep disorder [Not Recovered/Not Resolved]
  - Product outer packaging issue [Unknown]
  - Wrong technique in drug usage process [Unknown]
  - Poor quality drug administered [Unknown]
  - Product quality issue [Unknown]
  - Wrong technique in drug usage process [Unknown]
